FAERS Safety Report 5921838-5 (Version None)
Quarter: 2008Q4

REPORT INFORMATION
  Report Type: 
  Country: None (occurrence: None)
  Receive Date: 20081017
  Receipt Date: 20081007
  Transmission Date: 20090506
  Serious: Yes (Death, Hospitalization, Other)
  Sender: FDA-Public Use
  Company Number: US-AMGEN-QUU309153

PATIENT
  Sex: Male
  Weight: 80.5 kg

DRUGS (10)
  1. NEULASTA [Suspect]
     Indication: CHEMOTHERAPY
     Route: 058
     Dates: start: 20080508
  2. ARANESP [Suspect]
     Indication: ANAEMIA OF MALIGNANT DISEASE
  3. LEUCOVORIN CALCIUM [Concomitant]
     Dates: start: 20080211
  4. FLUOROURACIL [Concomitant]
     Dates: start: 20080211
  5. OXALIPLATIN [Concomitant]
     Dates: start: 20080211
  6. ASPIRIN [Concomitant]
  7. GLUCOSAMINE W/CHONDROITIN SULFATES [Concomitant]
  8. CENTRUM SILVER [Concomitant]
  9. FERROUS SULFATE [Concomitant]
  10. NSAID [Concomitant]

REACTIONS (24)
  - ALANINE AMINOTRANSFERASE INCREASED [None]
  - ASPARTATE AMINOTRANSFERASE INCREASED [None]
  - ASTHENIA [None]
  - ATRIAL FIBRILLATION [None]
  - BACK PAIN [None]
  - BACTERIAL INFECTION [None]
  - BLOOD ALKALINE PHOSPHATASE INCREASED [None]
  - BLOOD BILIRUBIN ABNORMAL [None]
  - BRAIN NATRIURETIC PEPTIDE INCREASED [None]
  - DEHYDRATION [None]
  - DIARRHOEA [None]
  - DYSPNOEA [None]
  - FATIGUE [None]
  - GASTRIC HAEMORRHAGE [None]
  - HAEMOPTYSIS [None]
  - HYPOTENSION [None]
  - LEUKOCYTOSIS [None]
  - NAUSEA [None]
  - PULMONARY ALVEOLAR HAEMORRHAGE [None]
  - RENAL FAILURE ACUTE [None]
  - RESPIRATORY FAILURE [None]
  - SPLENOMEGALY [None]
  - THROMBOCYTOPENIA [None]
  - VOMITING [None]
